FAERS Safety Report 7514818-X (Version None)
Quarter: 2011Q2

REPORT INFORMATION
  Report Type: 
  Country: None (occurrence: None)
  Receive Date: 20110601
  Receipt Date: 20110527
  Transmission Date: 20111010
  Serious: No
  Sender: FDA-Public Use
  Company Number: US-TEVA-283967USA

PATIENT
  Sex: Female
  Weight: 99.88 kg

DRUGS (4)
  1. AMPYRA [Suspect]
     Indication: PRODUCT USED FOR UNKNOWN INDICATION
     Dosage: 20 MILLIGRAM;
     Route: 048
     Dates: start: 20110423
  2. FUROSEMIDE [Concomitant]
  3. COPAXONE [Suspect]
     Indication: MULTIPLE SCLEROSIS
     Route: 058
  4. LACTOBACILLUS REUTERI [Concomitant]

REACTIONS (3)
  - RASH ERYTHEMATOUS [None]
  - RASH MACULAR [None]
  - PRURITUS [None]
